FAERS Safety Report 5845005-9 (Version None)
Quarter: 2008Q3

REPORT INFORMATION
  Report Type: 
  Country: None (occurrence: None)
  Receive Date: 20080814
  Receipt Date: 20080804
  Transmission Date: 20090109
  Serious: Yes (Other)
  Sender: FDA-Public Use
  Company Number: US-ROCHE-579336

PATIENT
  Sex: Female
  Weight: 72.1 kg

DRUGS (2)
  1. CAPECITABINE [Suspect]
     Indication: BREAST CANCER
     Dosage: TWO WEEKS ON AND ONE WEEK OFF
     Route: 065
     Dates: start: 20080626, end: 20080725
  2. TYKERB [Concomitant]

REACTIONS (1)
  - DISEASE PROGRESSION [None]
